FAERS Safety Report 21665299 (Version 2)
Quarter: 2023Q2

REPORT INFORMATION
  Report Type: Spontaneous
  Country: US (occurrence: US)
  Receive Date: 20221201
  Receipt Date: 20230524
  Transmission Date: 20230721
  Serious: Yes (Other)
  Sender: FDA-Public Use
  Company Number: US-UCBSA-2022068034

PATIENT
  Sex: Female

DRUGS (1)
  1. CIMZIA [Suspect]
     Active Substance: CERTOLIZUMAB PEGOL
     Indication: Crohn^s disease
     Dosage: 400 MILLIGRAM, EV 4 WEEKS
     Route: 058

REACTIONS (8)
  - Crohn^s disease [Unknown]
  - Glossodynia [Unknown]
  - Swelling of eyelid [Unknown]
  - Abdominal pain [Unknown]
  - Pain [Unknown]
  - Inability to afford medication [Unknown]
  - Product dose omission issue [Unknown]
  - Therapy interrupted [Unknown]
